FAERS Safety Report 13042080 (Version 3)
Quarter: 2017Q3

REPORT INFORMATION
  Report Type: Spontaneous
  Country: US (occurrence: US)
  Receive Date: 20161219
  Receipt Date: 20170824
  Transmission Date: 20171127
  Serious: No
  Sender: FDA-Public Use
  Company Number: US-PFIZER INC-2016578134

PATIENT
  Age: 62 Year
  Sex: Male

DRUGS (27)
  1. ROSUVASTATIN. [Concomitant]
     Active Substance: ROSUVASTATIN
     Dosage: UNK
  2. ZOLPIDEM [Concomitant]
     Active Substance: ZOLPIDEM\ZOLPIDEM TARTRATE
     Dosage: UNK
     Dates: start: 2016
  3. PREDNISONE. [Concomitant]
     Active Substance: PREDNISONE
     Dosage: UNK
     Dates: end: 2016
  4. LOPERAMIDE [Concomitant]
     Active Substance: LOPERAMIDE
     Dosage: UNK
  5. MUCINEX [Concomitant]
     Active Substance: GUAIFENESIN
     Indication: HYPERSENSITIVITY
     Dosage: UNK, 2X/DAY
  6. UNISOM SLEEPTABS [Concomitant]
     Active Substance: DOXYLAMINE SUCCINATE
     Dosage: UNK
  7. COMBIVENT [Concomitant]
     Active Substance: ALBUTEROL SULFATE\IPRATROPIUM BROMIDE
     Dosage: UNK
     Dates: start: 2014
  8. DICLOFENAC [Concomitant]
     Active Substance: DICLOFENAC
     Dosage: UNK
     Dates: start: 2014
  9. TAMSULOSIN [Concomitant]
     Active Substance: TAMSULOSIN
     Dosage: UNK
     Dates: start: 2016
  10. METHOTREXATE SODIUM. [Concomitant]
     Active Substance: METHOTREXATE SODIUM
     Dosage: UNK (25 MG/ML INJECTION SOLUTION 1 MILLILITER)
  11. METFORMIN [Concomitant]
     Active Substance: METFORMIN HYDROCHLORIDE
     Dosage: UNK
     Dates: start: 2016
  12. CALCIUM [Concomitant]
     Active Substance: CALCIUM
     Dosage: UNK
     Dates: end: 2016
  13. FOLIC ACID. [Concomitant]
     Active Substance: FOLIC ACID
     Dosage: UNK
     Dates: start: 2016
  14. VALSARTAN. [Concomitant]
     Active Substance: VALSARTAN
     Dosage: UNK
     Dates: start: 2014
  15. VITAMIN D [Concomitant]
     Active Substance: CHOLECALCIFEROL
     Dosage: UNK
     Dates: start: 2016
  16. CIALIS [Concomitant]
     Active Substance: TADALAFIL
     Dosage: UNK
     Dates: end: 2017
  17. MAGNESIUM [Concomitant]
     Active Substance: MAGNESIUM
     Dosage: UNK
     Dates: end: 2016
  18. XELJANZ XR [Suspect]
     Active Substance: TOFACITINIB CITRATE
     Indication: RHEUMATOID ARTHRITIS
     Dosage: 11 MG, 1X/DAY
     Dates: start: 201607
  19. STIOLTO RESPIMAT [Concomitant]
     Active Substance: OLODATEROL HYDROCHLORIDE\TIOTROPIUM BROMIDE MONOHYDRATE
     Dosage: UNK
     Dates: start: 2014
  20. BENZONATATE. [Concomitant]
     Active Substance: BENZONATATE
     Dosage: UNK
     Dates: start: 2014, end: 201706
  21. ALLEGRA [Concomitant]
     Active Substance: FEXOFENADINE HYDROCHLORIDE
     Dosage: UNK
     Dates: start: 2004
  22. AZITHROMYCIN ANHYDROUS. [Concomitant]
     Active Substance: AZITHROMYCIN ANHYDROUS
     Dosage: UNK
     Dates: start: 2016
  23. DALIRESP [Concomitant]
     Active Substance: ROFLUMILAST
     Dosage: UNK
     Dates: end: 201706
  24. BENADRYL [Concomitant]
     Active Substance: DIPHENHYDRAMINE HYDROCHLORIDE
     Dosage: UNK
     Dates: end: 2016
  25. TYLENOL [Concomitant]
     Active Substance: ACETAMINOPHEN
     Dosage: UNK
  26. GLUCOSAMINE [Concomitant]
     Active Substance: GLUCOSAMINE
     Dosage: UNK
  27. METOPROLOL. [Concomitant]
     Active Substance: METOPROLOL
     Dosage: UNK
     Dates: start: 2014

REACTIONS (3)
  - Diarrhoea [Recovered/Resolved]
  - Inflammation [Unknown]
  - Productive cough [Not Recovered/Not Resolved]

NARRATIVE: CASE EVENT DATE: 2016
